FAERS Safety Report 15690318 (Version 1)
Quarter: 2018Q4

REPORT INFORMATION
  Report Type: Spontaneous
  Country: US (occurrence: US)
  Receive Date: 20181126
  Receipt Date: 20181126
  Transmission Date: 20190205
  Serious: Yes (Hospitalization)
  Sender: FDA-Public Use
  Company Number: None

PATIENT
  Age: 77 Year
  Sex: Male

DRUGS (1)
  1. INFLIXIMAB-DYYB [Suspect]
     Active Substance: INFLIXIMAB-DYYB
     Indication: RHEUMATOID ARTHRITIS
     Dates: start: 20161117, end: 20180828

REACTIONS (9)
  - Flushing [None]
  - Somnolence [None]
  - Blood pressure increased [None]
  - Nausea [None]
  - Feeling abnormal [None]
  - Erythema [None]
  - Seizure [None]
  - Hyperhidrosis [None]
  - Syncope [None]

NARRATIVE: CASE EVENT DATE: 20180828
